FAERS Safety Report 4974935-5 (Version None)
Quarter: 2006Q2

REPORT INFORMATION
  Report Type: 
  Country: None (occurrence: None)
  Receive Date: 20060418
  Receipt Date: 20060411
  Transmission Date: 20061013
  Serious: Yes (Other)
  Sender: FDA-Public Use
  Company Number: FR-RB-3111-2006

PATIENT
  Age: 40 Year
  Sex: Male

DRUGS (2)
  1. BUPRENORPHINE HCL [Suspect]
     Indication: DRUG DEPENDENCE
     Dosage: DOSAGE UNKNOWN
     Route: 042
  2. HEROIN [Suspect]
     Indication: DRUG DEPENDENCE
     Dosage: DOSAGE UNKNOWN
     Route: 065

REACTIONS (3)
  - INJECTION SITE ABSCESS [None]
  - INTENTIONAL DRUG MISUSE [None]
  - VEIN DISORDER [None]
